FAERS Safety Report 6811150-4 (Version None)
Quarter: 2010Q2

REPORT INFORMATION
  Report Type: 
  Country: None (occurrence: None)
  Receive Date: 20100629
  Receipt Date: 20100629
  Transmission Date: 20101027
  Serious: No
  Sender: FDA-Public Use
  Company Number: None

PATIENT
  Sex: Female
  Weight: 61.2356 kg

DRUGS (1)
  1. TYLENOL PM [Suspect]
     Indication: INSOMNIA
     Dosage: 1 EACH NIGHT MONTHS FEB-MAY

REACTIONS (2)
  - DYSPHAGIA [None]
  - REPETITIVE SPEECH [None]
